FAERS Safety Report 7384617-0 (Version None)
Quarter: 2011Q1

REPORT INFORMATION
  Report Type: 
  Country: None (occurrence: None)
  Receive Date: 20110330
  Receipt Date: 20110228
  Transmission Date: 20110831
  Serious: No
  Sender: FDA-Public Use
  Company Number: US-BAYER-2011-020221

PATIENT
  Sex: Male

DRUGS (1)
  1. ALEVE [Suspect]
     Indication: TOOTHACHE
     Dosage: 2 DF, PRN
     Route: 048
     Dates: start: 20110228

REACTIONS (1)
  - DRUG ADMINISTRATION ERROR [None]
